FAERS Safety Report 24777654 (Version 1)
Quarter: 2024Q4

REPORT INFORMATION
  Report Type: Spontaneous
  Country: US (occurrence: None)
  Receive Date: 20241224
  Receipt Date: 20241224
  Transmission Date: 20250114
  Serious: No
  Sender: Public
  Company Number: None

PATIENT
  Sex: Female

DRUGS (1)
  1. KESIMPTA [Suspect]
     Active Substance: OFATUMUMAB
     Indication: Multiple sclerosis
     Dosage: FREQUENCY : MONTHLY;?
     Route: 042
     Dates: start: 202403

REACTIONS (5)
  - Multiple sclerosis relapse [None]
  - Multiple sclerosis [None]
  - Spinal disorder [None]
  - Cervix disorder [None]
  - Sensitive skin [None]
